FAERS Safety Report 5356087-5 (Version None)
Quarter: 2007Q2

REPORT INFORMATION
  Report Type: 
  Country: None (occurrence: None)
  Receive Date: 20070613
  Receipt Date: 20070604
  Transmission Date: 20071010
  Serious: Yes (Disabling)
  Sender: FDA-Public Use
  Company Number: GB-PFIZER INC-2007026276

PATIENT
  Age: 50 Year
  Sex: Male

DRUGS (9)
  1. PREGABALIN [Suspect]
     Indication: MUSCULOSKELETAL PAIN
     Route: 048
     Dates: start: 20060501, end: 20060601
  2. PREGABALIN [Suspect]
     Indication: NEURALGIA
  3. DIAZEPAM [Concomitant]
  4. ATENOLOL [Concomitant]
  5. CELEBREX [Concomitant]
  6. LANSOPRAZOLE [Concomitant]
  7. NITRAZEPAM [Concomitant]
  8. TRAMADOL HCL [Concomitant]
  9. CODEINE PHOSPHATE AND ACETAMINOPHEN [Concomitant]

REACTIONS (2)
  - INTENTION TREMOR [None]
  - TREMOR [None]
